FAERS Safety Report 7634133-3 (Version None)
Quarter: 2011Q3

REPORT INFORMATION
  Report Type: 
  Country: None (occurrence: None)
  Receive Date: 20110725
  Receipt Date: 20110714
  Transmission Date: 20111222
  Serious: Yes (Other)
  Sender: FDA-Public Use
  Company Number: DE-ASTRAZENECA-2011SE42267

PATIENT
  Sex: Male
  Weight: 72 kg

DRUGS (2)
  1. TREDAPTIVE [Suspect]
     Dosage: 1000 MG/20 MG, 1 IN 1 DAY
     Route: 048
     Dates: start: 20100708, end: 20100731
  2. CRESTOR [Suspect]
     Indication: LOW DENSITY LIPOPROTEIN INCREASED
     Dosage: 10 DF, 1 IN 1 DAY
     Route: 048
     Dates: start: 20100708, end: 20100731

REACTIONS (5)
  - FLUSHING [None]
  - MYALGIA [None]
  - VOMITING [None]
  - NAUSEA [None]
  - ABDOMINAL PAIN UPPER [None]
